FAERS Safety Report 8255916-5 (Version None)
Quarter: 2012Q1

REPORT INFORMATION
  Report Type: 
  Country: None (occurrence: None)
  Receive Date: 20120329
  Receipt Date: 20120315
  Transmission Date: 20120608
  Serious: Yes (Other)
  Sender: FDA-Public Use
  Company Number: DSM-2012-00328

PATIENT
  Age: 65 Year
  Sex: Male
  Weight: 85 kg

DRUGS (2)
  1. MENCORD (OLMESARTAN MEDOXOMIL) (TABLET) (OLMESARTAN MEDOXOMIL) [Suspect]
     Indication: HYPERTENSION
     Dosage: 10 MG, ORAL; 20 MG, ORAL
     Route: 048
     Dates: start: 20120216, end: 20120228
  2. MENCORD (OLMESARTAN MEDOXOMIL) (TABLET) (OLMESARTAN MEDOXOMIL) [Suspect]
     Indication: HYPERTENSION
     Dosage: 10 MG, ORAL; 20 MG, ORAL
     Route: 048
     Dates: start: 20120229, end: 20120229

REACTIONS (1)
  - FLUSHING [None]
